FAERS Safety Report 6511659-7 (Version None)
Quarter: 2009Q4

REPORT INFORMATION
  Report Type: 
  Country: None (occurrence: None)
  Receive Date: 20091222
  Receipt Date: 20090618
  Transmission Date: 20100525
  Serious: Yes (Hospitalization)
  Sender: FDA-Public Use
  Company Number: US-ASTRAZENECA-2009UW11566

PATIENT
  Age: 11040 Day
  Sex: Male
  Weight: 112.5 kg

DRUGS (3)
  1. CRESTOR [Suspect]
     Route: 048
  2. UNASYN [Concomitant]
  3. DOXYCYCLIN [Concomitant]

REACTIONS (1)
  - RHABDOMYOLYSIS [None]
